FAERS Safety Report 9225324 (Version 1)
Quarter: 2013Q2

REPORT INFORMATION
  Report Type: Spontaneous
  Country: FR (occurrence: FR)
  Receive Date: 20130411
  Receipt Date: 20130411
  Transmission Date: 20140414
  Serious: Yes (Other)
  Sender: FDA-Public Use
  Company Number: FR-009507513-1304FRA001496

PATIENT
  Age: 13 Year
  Sex: Female
  Weight: 50 kg

DRUGS (2)
  1. AERIUS [Suspect]
     Route: 048
  2. ZOPICLONE [Suspect]
     Dosage: 7.5 MG, ONCE
     Route: 048
     Dates: start: 20130129, end: 20130129

REACTIONS (2)
  - Wrong drug administered [Recovered/Resolved]
  - Medication error [Recovered/Resolved]
